FAERS Safety Report 7046892-1 (Version None)
Quarter: 2010Q4

REPORT INFORMATION
  Report Type: 
  Country: None (occurrence: None)
  Receive Date: 20101015
  Receipt Date: 20101005
  Transmission Date: 20110411
  Serious: Yes (Hospitalization, Other)
  Sender: FDA-Public Use
  Company Number: PHHY2010US54179

PATIENT
  Sex: Male
  Weight: 53.81 kg

DRUGS (11)
  1. EXJADE [Suspect]
     Indication: MYELODYSPLASTIC SYNDROME
     Dosage: 1000 MG DAILY
     Route: 048
     Dates: start: 20090408
  2. EXJADE [Suspect]
     Indication: HAEMOCHROMATOSIS
     Dosage: 1000 MG DAILY
     Route: 048
     Dates: start: 20100602
  3. EXJADE [Suspect]
     Dosage: UNK
     Dates: start: 20100602
  4. EXJADE [Suspect]
     Dosage: 500 MG, TID
     Dates: start: 20100503, end: 20100726
  5. EXJADE [Suspect]
     Dosage: 500 MG, TID
     Dates: start: 20100802, end: 20100816
  6. TERAZOSIN HCL [Concomitant]
  7. LEVOTHYROXINE [Concomitant]
     Dosage: UNK
  8. COLCHICINE [Concomitant]
  9. SIMVASTATIN [Concomitant]
     Dosage: UNK
  10. PREDNISONE [Concomitant]
  11. BACTRIM DS [Concomitant]

REACTIONS (6)
  - ABDOMINAL PAIN [None]
  - CHLAMYDIAL INFECTION [None]
  - DIARRHOEA [None]
  - DIVERTICULITIS [None]
  - HYPOXIA [None]
  - LUNG INFILTRATION [None]
